FAERS Safety Report 23274924 (Version 11)
Quarter: 2025Q2

REPORT INFORMATION
  Report Type: Report from Study
  Country: US (occurrence: US)
  Receive Date: 20231208
  Receipt Date: 20250415
  Transmission Date: 20250717
  Serious: Yes (Hospitalization, Other)
  Sender: TAKEDA
  Company Number: US-TAKEDA-2023TUS118409

PATIENT
  Age: 59 Year
  Sex: Female
  Weight: 76 kg

DRUGS (30)
  1. HUMAN IMMUNOGLOBULIN G [Suspect]
     Active Substance: HUMAN IMMUNOGLOBULIN G
     Indication: Immunodeficiency common variable
     Dosage: 40 GRAM, Q4WEEKS
     Dates: start: 20230926
  2. TYLENOL [Suspect]
     Active Substance: ACETAMINOPHEN
     Indication: Product used for unknown indication
  3. ACETAMINOPHEN [Concomitant]
     Active Substance: ACETAMINOPHEN
  4. EPINEPHRINE [Concomitant]
     Active Substance: EPINEPHRINE
  5. FAMOTIDINE [Concomitant]
     Active Substance: FAMOTIDINE
  6. OMEPRAZOLE [Concomitant]
     Active Substance: OMEPRAZOLE
  7. TIZANIDINE HYDROCHLORIDE [Concomitant]
     Active Substance: TIZANIDINE HYDROCHLORIDE
  8. HEPARIN [Concomitant]
     Active Substance: HEPARIN SODIUM
  9. SODIUM CHLORIDE [Concomitant]
     Active Substance: SODIUM CHLORIDE
  10. DULOXETINE HYDROCHLORIDE [Concomitant]
     Active Substance: DULOXETINE HYDROCHLORIDE
  11. HYDROXYZINE HYDROCHLORIDE [Concomitant]
     Active Substance: HYDROXYZINE HYDROCHLORIDE
  12. GABAPENTIN [Concomitant]
     Active Substance: GABAPENTIN
  13. LIDOCAINE [Concomitant]
     Active Substance: LIDOCAINE
  14. BENTYL [Concomitant]
     Active Substance: DICYCLOMINE HYDROCHLORIDE
  15. NUCALA [Concomitant]
     Active Substance: MEPOLIZUMAB
  16. ZETIA [Concomitant]
     Active Substance: EZETIMIBE
  17. VENTOLIN HFA [Concomitant]
     Active Substance: ALBUTEROL SULFATE
  18. DIPHENHYDRAMINE HYDROCHLORIDE [Concomitant]
     Active Substance: DIPHENHYDRAMINE HYDROCHLORIDE
  19. ISOSORBIDE DINITRATE [Concomitant]
     Active Substance: ISOSORBIDE DINITRATE
  20. REPATHA [Concomitant]
     Active Substance: EVOLOCUMAB
  21. ALPRAZOLAM [Concomitant]
     Active Substance: ALPRAZOLAM
  22. ROSUVASTATIN CALCIUM [Concomitant]
     Active Substance: ROSUVASTATIN CALCIUM
  23. VITAMIN D3 [Concomitant]
     Active Substance: CHOLECALCIFEROL
  24. SODIUM CHLORIDE [Concomitant]
     Active Substance: SODIUM CHLORIDE
  25. DUPIXENT [Concomitant]
     Active Substance: DUPILUMAB
  26. DICYCLOMINE HYDROCHLORIDE [Concomitant]
     Active Substance: DICYCLOMINE HYDROCHLORIDE
  27. GAMMAGARD LIQUID [Concomitant]
     Active Substance: HUMAN IMMUNOGLOBULIN G
  28. FOLIC ACID [Concomitant]
     Active Substance: FOLIC ACID
  29. MIRABEGRON [Concomitant]
     Active Substance: MIRABEGRON
  30. QUVIVIQ [Concomitant]
     Active Substance: DARIDOREXANT

REACTIONS (11)
  - Cushing^s syndrome [Unknown]
  - Chest pain [Unknown]
  - Urinary tract infection [Unknown]
  - Sleep disorder [Unknown]
  - Laryngitis [Unknown]
  - Product use complaint [Unknown]
  - Heart rate increased [Unknown]
  - Upper respiratory tract infection [Unknown]
  - Headache [Unknown]
  - Abdominal pain [Unknown]
  - Sinusitis [Unknown]

NARRATIVE: CASE EVENT DATE: 20240331
